FAERS Safety Report 24971644 (Version 2)
Quarter: 2025Q1

REPORT INFORMATION
  Report Type: Report from Study
  Country: US (occurrence: US)
  Receive Date: 20250214
  Receipt Date: 20250327
  Transmission Date: 20250408
  Serious: Yes (Other)
  Sender: SYNDAX
  Company Number: US-SYNDAX PHARMACEUTICALS, INC.-2025US000037

PATIENT
  Sex: Male
  Weight: 70.49 kg

DRUGS (1)
  1. REVUFORJ [Suspect]
     Active Substance: REVUMENIB CITRATE
     Indication: Acute lymphocytic leukaemia
     Dosage: 270 MILLIGRAM, BID, 110 MG AND 160 MG
     Route: 048
     Dates: start: 20241228

REACTIONS (2)
  - Electrocardiogram QT prolonged [Unknown]
  - Hypertension [Unknown]
